FAERS Safety Report 8462988-1 (Version None)
Quarter: 2012Q2

REPORT INFORMATION
  Report Type: 
  Country: None (occurrence: None)
  Receive Date: 20120625
  Receipt Date: 20120615
  Transmission Date: 20120825
  Serious: Yes (Other)
  Sender: FDA-Public Use
  Company Number: US-GLAXOSMITHKLINE-A0982182A

PATIENT
  Sex: Male

DRUGS (12)
  1. TEMAZEPAM [Suspect]
     Indication: SLEEP DISORDER
     Route: 065
     Dates: start: 20100901, end: 20100901
  2. ATIVAN [Suspect]
     Route: 065
     Dates: start: 20100901, end: 20100901
  3. TRAZODONE HCL [Suspect]
     Indication: DEPRESSION
     Route: 065
     Dates: start: 20100901, end: 20100901
  4. NAMENDA [Suspect]
     Indication: DEMENTIA WITH LEWY BODIES
     Route: 065
     Dates: start: 20100901, end: 20100901
  5. ANTIHISTAMINE [Suspect]
     Route: 065
     Dates: start: 20100901, end: 20100901
  6. VISTARIL [Suspect]
     Route: 065
     Dates: start: 20100901, end: 20100901
  7. REMERON [Suspect]
     Indication: DEPRESSION
     Route: 065
     Dates: start: 20100901, end: 20100901
  8. ASPIRIN [Suspect]
     Indication: ANTICOAGULANT THERAPY
     Route: 065
     Dates: start: 20100901, end: 20100901
  9. NEURONTIN [Suspect]
     Indication: DEMENTIA WITH LEWY BODIES
     Route: 065
     Dates: start: 20100907, end: 20100901
  10. ACETAMINOPHEN [Concomitant]
     Indication: PAIN
  11. LAMICTAL [Suspect]
     Indication: DEMENTIA WITH LEWY BODIES
     Route: 065
     Dates: start: 20100901, end: 20100901
  12. EXELON [Suspect]
     Indication: DEMENTIA WITH LEWY BODIES
     Route: 065
     Dates: start: 20100901, end: 20100901

REACTIONS (4)
  - DEMENTIA [None]
  - ABNORMAL BEHAVIOUR [None]
  - DRUG INTERACTION [None]
  - NERVOUS SYSTEM DISORDER [None]
